FAERS Safety Report 7723999-4 (Version None)
Quarter: 2011Q3

REPORT INFORMATION
  Report Type: 
  Country: None (occurrence: None)
  Receive Date: 20110901
  Receipt Date: 20110819
  Transmission Date: 20111222
  Serious: Yes (Hospitalization)
  Sender: FDA-Public Use
  Company Number: US-ELI_LILLY_AND_COMPANY-US201002001468

PATIENT
  Sex: Female

DRUGS (12)
  1. TRAMADOL HCL [Concomitant]
  2. ADDERALL 5 [Concomitant]
  3. LIBRIUM [Concomitant]
  4. HYDROCHLOROTHIAZIDE [Concomitant]
  5. MAGNESIUM [Concomitant]
  6. FORTEO [Suspect]
     Dosage: 20 UG, QD
  7. ASCORBIC ACID [Concomitant]
  8. FORTEO [Suspect]
     Indication: OSTEOPOROSIS
     Dosage: 20 UG, DAILY (1/D)
  9. MULTI-VITAMIN [Concomitant]
  10. VITAMIN E [Concomitant]
  11. VITAMIN D [Concomitant]
  12. STOOL SOFTENER [Concomitant]

REACTIONS (9)
  - MEAN CELL HAEMOGLOBIN INCREASED [None]
  - BLOOD COUNT ABNORMAL [None]
  - BACK PAIN [None]
  - MEAN CELL VOLUME INCREASED [None]
  - BLOOD SODIUM DECREASED [None]
  - RED BLOOD CELL ABNORMALITY [None]
  - MEAN PLATELET VOLUME DECREASED [None]
  - BLOOD UREA DECREASED [None]
  - BLOOD POTASSIUM DECREASED [None]
